FAERS Safety Report 8329688-X (Version None)
Quarter: 2012Q2

REPORT INFORMATION
  Report Type: 
  Country: None (occurrence: None)
  Receive Date: 20120502
  Receipt Date: 20120427
  Transmission Date: 20120825
  Serious: Yes (Hospitalization)
  Sender: FDA-Public Use
  Company Number: US-GLAXOSMITHKLINE-A0975570A

PATIENT
  Age: 29 Year
  Sex: Female

DRUGS (6)
  1. SEROQUEL XR [Concomitant]
  2. ABILIFY [Concomitant]
  3. LAMICTAL [Suspect]
     Indication: BIPOLAR DISORDER
     Dosage: 50MG PER DAY
     Route: 048
     Dates: start: 20100101, end: 20120327
  4. PERCOCET [Concomitant]
  5. FLUOXETINE [Concomitant]
  6. CLONAZEPAM [Concomitant]

REACTIONS (6)
  - DYSPNOEA [None]
  - CONVULSION [None]
  - CONSCIOUSNESS FLUCTUATING [None]
  - HYPERSENSITIVITY [None]
  - SWOLLEN TONGUE [None]
  - CHOKING [None]
